FAERS Safety Report 21754865 (Version 1)
Quarter: 2022Q4

REPORT INFORMATION
  Report Type: Spontaneous
  Country: IT (occurrence: IT)
  Receive Date: 20221220
  Receipt Date: 20221220
  Transmission Date: 20230113
  Serious: Yes (Other)
  Sender: FDA-Public Use
  Company Number: IT-TEVA-2022-IT-2838399

PATIENT
  Age: 73 Year
  Sex: Female

DRUGS (11)
  1. OXALIPLATIN [Interacting]
     Active Substance: OXALIPLATIN
     Indication: Adenocarcinoma of colon
     Dosage: A 2-H INTRAVENOUS INFUSION OF OXALIPLATIN ON DAY ONE , 130MG/M2
     Route: 041
  2. FLECAINIDE [Interacting]
     Active Substance: FLECAINIDE
     Indication: Product used for unknown indication
     Dosage: 100 MILLIGRAM DAILY;
     Route: 065
  3. LOVASTATIN [Interacting]
     Active Substance: LOVASTATIN
     Indication: Product used for unknown indication
     Dosage: 10 MILLIGRAM DAILY;
     Route: 065
  4. EZETIMIBE [Interacting]
     Active Substance: EZETIMIBE
     Indication: Product used for unknown indication
     Dosage: 10 MILLIGRAM DAILY;
     Route: 065
  5. VERAPAMIL [Interacting]
     Active Substance: VERAPAMIL HYDROCHLORIDE
     Indication: Product used for unknown indication
     Dosage: 40 MILLIGRAM DAILY;
     Route: 065
  6. APIXABAN [Interacting]
     Active Substance: APIXABAN
     Indication: Product used for unknown indication
     Dosage: 2.5 MILLIGRAM DAILY;
     Route: 065
  7. INDAPAMIDE [Interacting]
     Active Substance: INDAPAMIDE
     Indication: Product used for unknown indication
     Dosage: 2.5 MILLIGRAM DAILY;
     Route: 065
  8. CAPECITABINE [Interacting]
     Active Substance: CAPECITABINE
     Indication: Adenocarcinoma of colon
     Dosage: 2000 MG/M2 DAILY; FROM DAY 1 TO 14, EVERY THREE WEEKS
     Route: 048
  9. HERBALS\MINERALS\VITAMINS [Interacting]
     Active Substance: HERBALS\MINERALS\VITAMINS
     Indication: Supplementation therapy
     Dosage: ASCORBIC ACID/FOLIC ACID/IRON/MALPIGHIA EMARGINATA: 75MG/400MICROG/21MG/300MG
     Route: 065
  10. VITAMINS [Interacting]
     Active Substance: VITAMINS
     Indication: Supplementation therapy
     Dosage: COBALAMIN/FOLIC-ACID/NICOTINAMIDE/PANTOTHENIC-ACID/PYRIDOXINE/RIBOFLAVIN/THIAMINE 1.5MG/100MICROG/3M
     Route: 065
  11. ESOMEPRAZOLE [Concomitant]
     Active Substance: ESOMEPRAZOLE
     Indication: Product used for unknown indication
     Dosage: 20 MILLIGRAM DAILY;
     Route: 065

REACTIONS (6)
  - Diarrhoea [Recovering/Resolving]
  - Palmar-plantar erythrodysaesthesia syndrome [Recovering/Resolving]
  - Drug interaction [Unknown]
  - Nausea [Unknown]
  - Paraesthesia [Unknown]
  - Conjunctivitis [Unknown]
